FAERS Safety Report 9509954 (Version 2)
Quarter: 2013Q3

REPORT INFORMATION
  Report Type: Spontaneous
  Country: US (occurrence: US)
  Receive Date: 20130909
  Receipt Date: 20130909
  Transmission Date: 20140515
  Serious: No
  Sender: FDA-Public Use
  Company Number: US-BRISTOL-MYERS SQUIBB COMPANY-18789073

PATIENT
  Age: 32 Year
  Sex: Female
  Weight: 61.22 kg

DRUGS (6)
  1. ABILIFY [Suspect]
     Indication: BIPOLAR DISORDER
     Dosage: BEFORE NOON?02JUN2010-UNK: 10G;?23MAR2011-UNK:5G
  2. ABILIFY [Suspect]
     Indication: OBSESSIVE-COMPULSIVE DISORDER
     Dosage: BEFORE NOON?02JUN2010-UNK: 10G;?23MAR2011-UNK:5G
  3. CELEXA [Suspect]
  4. LAMICTAL [Suspect]
  5. SYNTHROID [Concomitant]
     Indication: THYROID DISORDER
  6. VYVANSE [Concomitant]
     Dosage: BEFORE NOON

REACTIONS (6)
  - Obsessive thoughts [Unknown]
  - Vertigo [Unknown]
  - Tachyphrenia [Unknown]
  - Somnolence [Unknown]
  - Crying [Unknown]
  - Weight increased [Unknown]
